FAERS Safety Report 17214253 (Version 2)
Quarter: 2020Q1

REPORT INFORMATION
  Report Type: Report from Study
  Country: AR (occurrence: AR)
  Receive Date: 20191230
  Receipt Date: 20200203
  Transmission Date: 20200409
  Serious: Yes (Other)
  Sender: FDA-Public Use
  Company Number: AR-INCYTE CORPORATION-2019IN012956

PATIENT

DRUGS (1)
  1. JAKAVI [Suspect]
     Active Substance: RUXOLITINIB
     Indication: POLYCYTHAEMIA VERA
     Dosage: 15 MG, QD
     Route: 065
     Dates: start: 20190906, end: 201912

REACTIONS (2)
  - Therapy non-responder [Unknown]
  - Myeloproliferative neoplasm [Unknown]

NARRATIVE: CASE EVENT DATE: 201912
